FAERS Safety Report 5840330-X (Version None)
Quarter: 2008Q3

REPORT INFORMATION
  Report Type: 
  Country: None (occurrence: None)
  Receive Date: 20080807
  Receipt Date: 20080807
  Transmission Date: 20090109
  Serious: Yes (Life-Threatening, Hospitalization)
  Sender: FDA-Public Use
  Company Number: None

PATIENT
  Age: 65 Year
  Sex: Female
  Weight: 95.2554 kg

DRUGS (1)
  1. TRILYTE [Suspect]
     Indication: PREOPERATIVE CARE
     Dosage: 2 8 OZ GLASSES 20 MINUTES APART
     Dates: start: 20080730

REACTIONS (4)
  - PAIN [None]
  - PRURITUS [None]
  - SHOCK [None]
  - URTICARIA [None]
